FAERS Safety Report 5920502-6 (Version None)
Quarter: 2008Q4

REPORT INFORMATION
  Report Type: 
  Country: None (occurrence: None)
  Receive Date: 20081016
  Receipt Date: 20081010
  Transmission Date: 20090506
  Serious: Yes (Hospitalization)
  Sender: FDA-Public Use
  Company Number: B0536938A

PATIENT
  Age: 40 Year
  Sex: Male

DRUGS (1)
  1. REQUIP [Suspect]
     Indication: PARKINSON'S DISEASE
     Dosage: 2MG TWICE PER DAY
     Route: 048
     Dates: end: 20080904

REACTIONS (3)
  - ACCIDENT [None]
  - RIB FRACTURE [None]
  - SOMNOLENCE [None]
